FAERS Safety Report 13784653 (Version 2)
Quarter: 2017Q4

REPORT INFORMATION
  Report Type: Spontaneous
  Country: US (occurrence: US)
  Receive Date: 20170724
  Receipt Date: 20171024
  Transmission Date: 20180320
  Serious: No
  Sender: FDA-Public Use
  Company Number: US-IMPAX LABORATORIES, INC-2017-IPXL-01447

PATIENT
  Sex: Female
  Weight: 61 kg

DRUGS (11)
  1. ATIVAN [Suspect]
     Active Substance: LORAZEPAM
     Indication: RESTLESSNESS
     Dosage: 1 MG, ONCE OR TWICE A DAY
     Route: 065
     Dates: start: 201707
  2. DULOXETINE. [Concomitant]
     Active Substance: DULOXETINE
     Indication: DEPRESSION
     Dosage: UNK
     Route: 065
  3. NEXIUM [Concomitant]
     Active Substance: ESOMEPRAZOLE MAGNESIUM
     Indication: HIATUS HERNIA
  4. RYTARY [Suspect]
     Active Substance: CARBIDOPA\LEVODOPA
     Dosage: 48.75/195MG, 1 DF, 5 /DAY
     Route: 048
     Dates: start: 20170424, end: 2017
  5. RYTARY [Suspect]
     Active Substance: CARBIDOPA\LEVODOPA
     Dosage: 48.75/195MG, 3 DF, 3 /DAY
     Route: 048
     Dates: start: 201703
  6. ATIVAN [Suspect]
     Active Substance: LORAZEPAM
     Indication: ANXIETY
     Dosage: 1 MG, ONCE OR TWICE A DAY
     Route: 065
     Dates: start: 2014, end: 201704
  7. DULOXETINE. [Concomitant]
     Active Substance: DULOXETINE
     Indication: PAIN
  8. RYTARY [Suspect]
     Active Substance: CARBIDOPA\LEVODOPA
     Indication: PARKINSON^S DISEASE
     Dosage: 48.75/195MG, 3 DF, 3 /DAY
     Route: 048
     Dates: start: 201703, end: 201704
  9. BABY ASPIRIN [Concomitant]
     Active Substance: ASPIRIN
     Indication: INFLAMMATION
     Dosage: 81 MG, 3 TO 4 TIMES A WEEK
     Route: 065
  10. NEXIUM [Concomitant]
     Active Substance: ESOMEPRAZOLE MAGNESIUM
     Indication: DYSPEPSIA
     Dosage: UNK
     Route: 065
  11. RYTARY [Suspect]
     Active Substance: CARBIDOPA\LEVODOPA
     Dosage: 48.75/195MG, UNK
     Route: 048
     Dates: start: 2017

REACTIONS (7)
  - Akathisia [Recovering/Resolving]
  - Dyskinesia [Recovering/Resolving]
  - Decreased appetite [Recovering/Resolving]
  - Intentional overdose [Unknown]
  - Anxiety [Recovering/Resolving]
  - Feeling abnormal [Recovering/Resolving]
  - Hyperhidrosis [Recovering/Resolving]

NARRATIVE: CASE EVENT DATE: 2017
